FAERS Safety Report 8385545-4 (Version None)
Quarter: 2012Q2

REPORT INFORMATION
  Report Type: 
  Country: None (occurrence: None)
  Receive Date: 20120525
  Receipt Date: 20090210
  Transmission Date: 20120825
  Serious: No
  Sender: FDA-Public Use
  Company Number: 2009BI004496

PATIENT
  Sex: Female

DRUGS (2)
  1. AMPYRA [Concomitant]
  2. TYSABRI [Suspect]
     Indication: MULTIPLE SCLEROSIS
     Route: 042
     Dates: start: 20090108, end: 20090209

REACTIONS (6)
  - BALANCE DISORDER [None]
  - ANTIBODY TEST POSITIVE [None]
  - HYPERSENSITIVITY [None]
  - COORDINATION ABNORMAL [None]
  - MUSCULOSKELETAL DISORDER [None]
  - FATIGUE [None]
